FAERS Safety Report 4411383-0 (Version None)
Quarter: 2004Q3

REPORT INFORMATION
  Report Type: 
  Country: None (occurrence: None)
  Receive Date: 20040727
  Receipt Date: 20040707
  Transmission Date: 20050211
  Serious: Yes (Hospitalization)
  Sender: FDA-Public Use
  Company Number: 2004PL000041

PATIENT
  Age: 56 Year
  Sex: Female

DRUGS (3)
  1. AZATHIOPRINE [Suspect]
     Indication: RENAL TRANSPLANT
     Dosage: 50 MG; DAILY; ORAL
     Route: 048
  2. MIZORIBINE (MIZORIBINE) [Suspect]
     Indication: RENAL TRANSPLANT
     Dosage: 100 MG; DAILY; ORAL
     Route: 048
  3. METHYLPREDNISOLONE [Suspect]
     Indication: RENAL TRANSPLANT
     Dosage: 6 MG; DAILY; ORAL
     Route: 048

REACTIONS (9)
  - ASTHENIA [None]
  - BREAST CANCER FEMALE [None]
  - BREAST CANCER STAGE I [None]
  - COLON CANCER [None]
  - CRYPTOCOCCOSIS [None]
  - DIFFICULTY IN WALKING [None]
  - HAEMANGIOMA OF LIVER [None]
  - KIDNEY TRANSPLANT REJECTION [None]
  - MENINGIOMA BENIGN [None]
